FAERS Safety Report 5567418-5 (Version None)
Quarter: 2007Q4

REPORT INFORMATION
  Report Type: 
  Country: None (occurrence: None)
  Receive Date: 20071214
  Receipt Date: 20071030
  Transmission Date: 20080405
  Serious: Yes (Hospitalization)
  Sender: FDA-Public Use
  Company Number: 164718ISR

PATIENT
  Age: 6 Year
  Sex: Female

DRUGS (8)
  1. ETOPOSIDE [Suspect]
     Indication: T-CELL TYPE ACUTE LEUKAEMIA
     Dosage: 1200 MG, CYCLICAL
     Dates: start: 20071005, end: 20071005
  2. NALBUPHINE [Suspect]
     Dosage: 24 MG (4 MG, 6 IN 1 D)
     Route: 042
  3. METOPIMAZINE [Suspect]
     Indication: VOMITING
     Dosage: 20 MG (20 MG)
     Route: 042
     Dates: start: 20071005, end: 20071009
  4. CHLOROPROMAZINE HYDROCHLORIDE [Suspect]
     Indication: VOMITING
     Dosage: 10 MG
     Route: 042
     Dates: start: 20071005, end: 20071007
  5. ACETAMINOPHEN [Suspect]
     Indication: ANALGESIA
     Dosage: 12 GRAM
     Route: 042
     Dates: end: 20071007
  6. URSODIOL [Suspect]
     Route: 042
  7. PHLOROGLUCINOL [Suspect]
     Indication: ABDOMINAL PAIN
     Route: 042
  8. CEFTAZIDIME [Suspect]
     Indication: PROPHYLAXIS
     Dosage: 3 GRAM
     Route: 042
     Dates: start: 20071011

REACTIONS (3)
  - HYPONATRAEMIA [None]
  - RENAL FAILURE ACUTE [None]
  - URINARY RETENTION [None]
